FAERS Safety Report 11058701 (Version 1)
Quarter: 2015Q2

REPORT INFORMATION
  Report Type: Report from Study
  Country: US (occurrence: None)
  Receive Date: 20150420
  Receipt Date: 20150420
  Transmission Date: 20150821
  Serious: No
  Sender: FDA-Public Use
  Company Number: AEGR001090

PATIENT
  Age: 58 Year
  Sex: Female
  Weight: 81.6 kg

DRUGS (10)
  1. SYNTHROID [Concomitant]
     Active Substance: LEVOTHYROXINE SODIUM
  2. CRESTOR [Concomitant]
     Active Substance: ROSUVASTATIN CALCIUM
  3. ZETIA [Concomitant]
     Active Substance: EZETIMIBE
  4. METFORMIN [Concomitant]
     Active Substance: METFORMIN HYDROCHLORIDE
  5. SERTRALINE HCL [Concomitant]
     Active Substance: SERTRALINE HYDROCHLORIDE
  6. LOVAZA [Concomitant]
     Active Substance: OMEGA-3-ACID ETHYL ESTERS
  7. JUXTAPID [Suspect]
     Active Substance: LOMITAPIDE MESYLATE
     Indication: TYPE IIA HYPERLIPIDAEMIA
     Route: 048
     Dates: start: 201409
  8. LISINOPRIL. [Concomitant]
     Active Substance: LISINOPRIL
  9. SINGULAIR (MONTELUKAST SODIUM) [Concomitant]
  10. NIASPAN (NICOTINIC ACID) [Concomitant]

REACTIONS (1)
  - Influenza [None]
